FAERS Safety Report 5318560-5 (Version None)
Quarter: 2007Q1

REPORT INFORMATION
  Report Type: 
  Country: None (occurrence: None)
  Receive Date: 20070130
  Receipt Date: 20061116
  Transmission Date: 20070707
  Serious: Yes (Other)
  Sender: FDA-Public Use
  Company Number: 200619379US

PATIENT
  Sex: Female

DRUGS (3)
  1. KETEK [Suspect]
     Dates: start: 20061101, end: 20061101
  2. STEROIDS NOS [Concomitant]
  3. PREDNISONE TAB [Concomitant]

REACTIONS (2)
  - ANGIOEDEMA [None]
  - SWOLLEN TONGUE [None]
